FAERS Safety Report 4436945-6 (Version None)
Quarter: 2004Q3

REPORT INFORMATION
  Report Type: 
  Country: None (occurrence: None)
  Receive Date: 20040827
  Receipt Date: 20040817
  Transmission Date: 20050211
  Serious: Yes (Death)
  Sender: FDA-Public Use
  Company Number: 163-20785-04060542

PATIENT
  Age: 73 Year
  Sex: Male

DRUGS (1)
  1. THALOMID [Suspect]
     Indication: MULTIPLE MYELOMA
     Dosage: 100 MG, DAILY, ORAL
     Route: 048
     Dates: start: 20021004, end: 20040420

REACTIONS (3)
  - ACUTE MYELOID LEUKAEMIA [None]
  - PATHOLOGICAL FRACTURE [None]
  - STAPHYLOCOCCAL INFECTION [None]
